FAERS Safety Report 4977872-5 (Version None)
Quarter: 2006Q2

REPORT INFORMATION
  Report Type: 
  Country: None (occurrence: None)
  Receive Date: 20060420
  Receipt Date: 20060411
  Transmission Date: 20061013
  Serious: Yes (Hospitalization)
  Sender: FDA-Public Use
  Company Number: DE-GLAXOSMITHKLINE-D0049380A

PATIENT
  Age: 40 Year
  Sex: Male
  Weight: 75 kg

DRUGS (5)
  1. TELZIR [Suspect]
     Indication: HIV INFECTION
     Dosage: 1TAB TWICE PER DAY
     Route: 048
     Dates: start: 20040903, end: 20051114
  2. NORVIR [Suspect]
     Indication: PROPHYLAXIS
     Dosage: 100MG TWICE PER DAY
     Route: 048
     Dates: start: 20040903, end: 20051114
  3. ZIAGEN [Concomitant]
     Indication: HIV INFECTION
     Dosage: 300MG TWICE PER DAY
     Route: 065
     Dates: start: 20010817
  4. EPIVIR [Concomitant]
     Indication: HIV INFECTION
     Dosage: 150MG TWICE PER DAY
     Route: 065
     Dates: start: 20010817
  5. VIRAMUNE [Concomitant]
     Indication: HIV INFECTION
     Dosage: 200MG TWICE PER DAY
     Route: 065
     Dates: start: 20010817, end: 20040903

REACTIONS (5)
  - ACUTE MYOCARDIAL INFARCTION [None]
  - ANGINA PECTORIS [None]
  - BODY FAT DISORDER [None]
  - CORONARY ARTERY DISEASE [None]
  - NAUSEA [None]
